FAERS Safety Report 9333658 (Version 1)
Quarter: 2013Q2

REPORT INFORMATION
  Report Type: Report from Study
  Country: JP (occurrence: JP)
  Receive Date: 20130606
  Receipt Date: 20130606
  Transmission Date: 20140414
  Serious: Yes (Other)
  Sender: FDA-Public Use
  Company Number: JP-OTSUKA-JP-2012-15682

PATIENT
  Age: 67 Year
  Sex: Male

DRUGS (14)
  1. SAMSCA [Suspect]
     Indication: FLUID RETENTION
     Dosage: 7.5 MG MILLIGRAM(S), QAM
     Route: 048
     Dates: start: 20120414, end: 20120414
  2. SAMSCA [Suspect]
     Dosage: 15 MG MILLIGRAM(S), QAM
     Route: 048
     Dates: start: 20120415, end: 20120421
  3. HANP [Concomitant]
     Indication: CARDIAC FAILURE
     Dosage: 3000 MCG, DAILY DOSE
     Route: 042
  4. DOPAMINE HYDROCHLORIDE [Concomitant]
     Indication: CARDIAC FAILURE
     Dosage: 5 MCG, DAILY DOSE
     Route: 042
  5. DOBUTAMINE [Concomitant]
     Indication: CARDIAC FAILURE
     Dosage: 5 MCG, DAILY DOSE
     Route: 042
  6. MILRINONE [Concomitant]
     Indication: CARDIAC FAILURE
     Dosage: 0.5 MCG, DAILY DOSE
     Route: 042
  7. ANCARON [Concomitant]
     Indication: CARDIAC FAILURE
     Dosage: 225 MG MILLIGRAM(S), DAILY DOSE
     Route: 042
  8. XYLOCAINE [Concomitant]
     Indication: CARDIAC FAILURE
     Dosage: 400 MG MILLIGRAM(S), DAILY DOSE
     Route: 042
  9. HEPARIN [Concomitant]
     Indication: CARDIAC FAILURE
     Dosage: 15 KIU IU(1000S), DAILY DOSE
     Route: 042
  10. LASIX [Concomitant]
     Indication: CARDIAC FAILURE
     Dosage: 60 MG MILLIGRAM(S), DAILY DOSE
     Route: 048
  11. ALDACTONE A [Concomitant]
     Indication: CARDIAC FAILURE
     Dosage: 25 MG MILLIGRAM(S), DAILY DOSE
     Route: 048
  12. MAINTATE [Concomitant]
     Indication: CARDIAC FAILURE
     Dosage: 2.5 MG MILLIGRAM(S), DAILY DOSE
     Route: 048
  13. COVERSYL [Concomitant]
     Indication: CARDIAC FAILURE
     Dosage: 4 MG MILLIGRAM(S), DAILY DOSE
     Route: 048
  14. DIGOSIN [Concomitant]
     Indication: CARDIAC FAILURE
     Dosage: 0.1 MG MILLIGRAM(S), DAILY DOSE
     Route: 048
     Dates: start: 20120416

REACTIONS (1)
  - Hypernatraemia [Recovering/Resolving]
